FAERS Safety Report 8533061-9 (Version None)
Quarter: 2012Q3

REPORT INFORMATION
  Report Type: 
  Country: None (occurrence: None)
  Receive Date: 20120724
  Receipt Date: 20120717
  Transmission Date: 20120928
  Serious: Yes (Other)
  Sender: FDA-Public Use
  Company Number: US-BAYER-200940881NA

PATIENT
  Age: 69 Year
  Sex: Male
  Weight: 68 kg

DRUGS (38)
  1. METOPROLOL SUCCINATE [Concomitant]
     Dosage: 50 MG TWICE DAILY
     Route: 048
  2. DIOVAN [Concomitant]
     Dosage: 160/12.5
     Route: 048
  3. NORVASC [Concomitant]
     Dosage: 5 MG, QD
     Route: 048
     Dates: start: 20041129
  4. CATAPRES [Concomitant]
     Dosage: 0.25 MG, HS
     Route: 048
     Dates: start: 20041127
  5. TRASYLOL [Suspect]
     Indication: CORONARY ARTERY BYPASS
     Dosage: 100 ML/HOUR DRIP
     Route: 042
     Dates: start: 20041203, end: 20041203
  6. TRASYLOL [Suspect]
     Dosage: 1 ML INITIAL TEST DOSE
     Dates: start: 20041203, end: 20041203
  7. PLAVIX [Concomitant]
     Dosage: 75 MG DAILY
     Route: 048
  8. IMDUR [Concomitant]
     Dosage: 60 MG, QD
  9. LEVAQUIN [Concomitant]
     Dosage: 500 MG, QD
     Route: 042
     Dates: start: 20041129
  10. PANCURONIUM BROMIDE [Concomitant]
     Dosage: UNK
     Dates: start: 20041203, end: 20041203
  11. FAMOTIDINE [Concomitant]
     Dosage: UNK
     Dates: start: 20041203, end: 20041203
  12. VANCOMYCIN [Concomitant]
     Dosage: 100 MG
     Dates: start: 20041203, end: 20041203
  13. MANNITOL [Concomitant]
  14. ASPIRIN [Concomitant]
     Dosage: 325 MG, QD
     Route: 048
  15. MILRINONE LACTATE [Concomitant]
     Dosage: UNK
     Dates: start: 20041203
  16. TRASYLOL [Suspect]
     Dosage: 200 ML LOADING DOSE
     Dates: start: 20041203, end: 20041203
  17. INSULIN [Concomitant]
     Dosage: 35 UNITS AM, 15 UNITS PM
     Route: 048
  18. NITROGLYCERIN [Concomitant]
     Dosage: UNK
     Route: 042
     Dates: start: 20041203
  19. CARDIZEM LA [Concomitant]
  20. ZOCOR [Concomitant]
     Dosage: 40 MG DAILY
  21. PROTAMINE SULFATE [Concomitant]
     Dosage: UNK
     Route: 042
     Dates: start: 20041203
  22. HEPARIN [Concomitant]
     Route: 042
  23. MIDAZOLAM [Concomitant]
     Dosage: UNK
     Dates: start: 20041203, end: 20041203
  24. CARDIOPLEGIA [Concomitant]
  25. ZETIA [Concomitant]
     Dosage: 10 MG DAILY
     Route: 048
  26. MUCOMYST [Concomitant]
     Dosage: 600 MG, TID
     Dates: start: 20041118
  27. PROTONIX [Concomitant]
     Dosage: 40 MG, QD
     Route: 048
     Dates: start: 20041129
  28. SODIUM BICARBONATE [Concomitant]
  29. CALCIUM CHLORIDE [Concomitant]
  30. LISINOPRIL [Concomitant]
     Dosage: 40 MG DAILY
     Route: 048
  31. FLEXERIL [Concomitant]
     Dosage: 10 MG, TID
     Route: 048
     Dates: start: 20041127
  32. PROPRANOLOL [Concomitant]
     Dosage: UNK
     Dates: start: 20041203, end: 20041203
  33. NORMOSOL [Concomitant]
  34. TRASYLOL [Suspect]
     Dosage: 200 ML CARDIOPULMONARY BYPASS PRIME
     Dates: start: 20041203, end: 20041203
  35. ACTOS [Concomitant]
     Dosage: 30 MG DAILY
     Route: 048
  36. LASIX [Concomitant]
     Dosage: 40 MG TWICE DAILY
     Route: 048
  37. FLOMAX [Concomitant]
     Dosage: 0.4MG
  38. LIDOCAINE [Concomitant]

REACTIONS (12)
  - DISABILITY [None]
  - RENAL INJURY [None]
  - PAIN [None]
  - DEPRESSION [None]
  - ANHEDONIA [None]
  - MULTI-ORGAN FAILURE [None]
  - RENAL FAILURE [None]
  - UNEVALUABLE EVENT [None]
  - EMOTIONAL DISORDER [None]
  - INJURY [None]
  - ANXIETY [None]
  - FEAR [None]
